FAERS Safety Report 8214722-8 (Version None)
Quarter: 2012Q1

REPORT INFORMATION
  Report Type: 
  Country: None (occurrence: None)
  Receive Date: 20120316
  Receipt Date: 20120306
  Transmission Date: 20120608
  Serious: Yes (Hospitalization)
  Sender: FDA-Public Use
  Company Number: FR-SANOFI-AVENTIS-2012SA015002

PATIENT
  Age: 80 Year
  Sex: Female

DRUGS (2)
  1. ROCEPHIN [Suspect]
     Dosage: STRENGTH: 1 G
     Route: 042
     Dates: start: 20120103, end: 20120111
  2. CLOPIDOGREL [Suspect]
     Route: 048
     Dates: start: 20120103, end: 20120123

REACTIONS (1)
  - DRUG RASH WITH EOSINOPHILIA AND SYSTEMIC SYMPTOMS [None]
